FAERS Safety Report 19086517 (Version 1)
Quarter: 2021Q2

REPORT INFORMATION
  Report Type: Spontaneous
  Country: US (occurrence: US)
  Receive Date: 20210401
  Receipt Date: 20210401
  Transmission Date: 20210717
  Serious: Yes (Hospitalization)
  Sender: FDA-Public Use
  Company Number: None

PATIENT
  Age: 59 Year
  Sex: Female

DRUGS (7)
  1. CITALOPRAM [Concomitant]
     Active Substance: CITALOPRAM HYDROBROMIDE
  2. SINGULAIR [Concomitant]
     Active Substance: MONTELUKAST SODIUM
  3. ALECENSA [Suspect]
     Active Substance: ALECTINIB HYDROCHLORIDE
     Indication: LUNG NEOPLASM MALIGNANT
     Route: 048
     Dates: start: 20200813
  4. LORBRENA [Concomitant]
     Active Substance: LORLATINIB
  5. ESTRADIOL. [Concomitant]
     Active Substance: ESTRADIOL
  6. PROGESTERONE. [Concomitant]
     Active Substance: PROGESTERONE
  7. ROSUVASTATIN. [Concomitant]
     Active Substance: ROSUVASTATIN

REACTIONS (3)
  - Therapy interrupted [None]
  - Pleural effusion [None]
  - Thrombosis [None]

NARRATIVE: CASE EVENT DATE: 202103
